FAERS Safety Report 5805176-7 (Version None)
Quarter: 2008Q3

REPORT INFORMATION
  Report Type: 
  Country: None (occurrence: None)
  Receive Date: 20080707
  Receipt Date: 20080624
  Transmission Date: 20090109
  Serious: Yes (Hospitalization, Other)
  Sender: FDA-Public Use
  Company Number: PHEH2008US05680

PATIENT
  Age: 56 Year
  Sex: Female
  Weight: 65.4 kg

DRUGS (9)
  1. DICLOFENAC SODIUM [Suspect]
     Indication: RHEUMATOID ARTHRITIS
  2. ENBREL [Suspect]
     Dates: start: 20040624, end: 20080226
  3. DEXTROPROPOXYPHENE NAPSILATE W/PARACETAMOL(DEXTROPROPOXYPHENE NAPSILAT [Suspect]
  4. NICARDIPINE HYDROCHLORIDE [Concomitant]
  5. FUROSEMIDE [Concomitant]
  6. EZETIMIBE W/SIMVASTATIN (EZETIMIBE, SIMVASTATIN) [Concomitant]
  7. SERTRALINE HYDROCHLORIDE (NGX) (SERTRALINE) [Concomitant]
  8. BUSPIRONE HCL [Concomitant]
  9. OMEPRAZOLE [Concomitant]

REACTIONS (15)
  - ANGIOPATHY [None]
  - AORTIC DILATATION [None]
  - BENIGN SALIVARY GLAND NEOPLASM [None]
  - CELLULITIS [None]
  - CHRONIC OBSTRUCTIVE PULMONARY DISEASE [None]
  - COLITIS [None]
  - CONSTIPATION [None]
  - DYSPHONIA [None]
  - FOOT DEFORMITY [None]
  - GALLBLADDER DISORDER [None]
  - LUNG INFECTION [None]
  - MUSCULOSKELETAL STIFFNESS [None]
  - NASAL CONGESTION [None]
  - OEDEMA PERIPHERAL [None]
  - OESOPHAGEAL CANDIDIASIS [None]
